FAERS Safety Report 4880926-5 (Version None)
Quarter: 2005Q4

REPORT INFORMATION
  Report Type: 
  Country: None (occurrence: None)
  Receive Date: 20051223
  Receipt Date: 20051026
  Transmission Date: 20060501
  Serious: No
  Sender: FDA-Public Use
  Company Number: 05P-163-0315323-00

PATIENT
  Age: 52 Year
  Sex: Female
  Weight: 77.1115 kg

DRUGS (7)
  1. HUMIRA [Suspect]
     Indication: RHEUMATOID ARTHRITIS
     Dosage: 40 MG, 1 IN 2 WK, SUBCUTANEOUS; SEE IMAGE
     Route: 058
     Dates: start: 20030101, end: 20050415
  2. HUMIRA [Suspect]
     Indication: RHEUMATOID ARTHRITIS
     Dosage: 40 MG, 1 IN 2 WK, SUBCUTANEOUS; SEE IMAGE
     Route: 058
     Dates: start: 20050926
  3. METHOTREXATE [Concomitant]
  4. FOLIC ACID [Concomitant]
  5. B-KOMPLEX ^LECIVA^ [Concomitant]
  6. LEXAPRO [Concomitant]
  7. IMITREX [Concomitant]

REACTIONS (4)
  - FATIGUE [None]
  - PAIN [None]
  - RASH [None]
  - RHEUMATOID ARTHRITIS [None]
